FAERS Safety Report 25985641 (Version 1)
Quarter: 2025Q4

REPORT INFORMATION
  Report Type: Spontaneous
  Country: CA (occurrence: CA)
  Receive Date: 20251101
  Receipt Date: 20251101
  Transmission Date: 20260117
  Serious: Yes (Other)
  Sender: CELLTRION
  Company Number: CA-PFIZER INC-202500173179

PATIENT

DRUGS (3)
  1. INFLECTRA [Suspect]
     Active Substance: INFLIXIMAB-DYYB
     Indication: Crohn^s disease
     Dosage: 385 MG, AT WEEK 0, 2, AND 6 THEN Q 8 WEEKS (WEEK 0 DOSE IN HOSPITAL ON 17APR2024)
     Route: 042
     Dates: start: 20250703
  2. INFLECTRA [Suspect]
     Active Substance: INFLIXIMAB-DYYB
     Dosage: 385 MG, 8 WEEKS (385 MG, AT WEEK 0, 2, AND 6 THEN Q 8 WEEKS)
     Route: 042
     Dates: start: 20250828
  3. PREDNISONE [Concomitant]
     Active Substance: PREDNISONE
     Dosage: 1 DF
     Dates: start: 20240416

REACTIONS (1)
  - Malignant melanoma [Unknown]

NARRATIVE: CASE EVENT DATE: 20250101
